FAERS Safety Report 6078081-1 (Version None)
Quarter: 2009Q1

REPORT INFORMATION
  Report Type: 
  Country: None (occurrence: None)
  Receive Date: 20090121
  Receipt Date: 20081125
  Transmission Date: 20090719
  Serious: Yes (Hospitalization, Other)
  Sender: FDA-Public Use
  Company Number: US-2008-00024

PATIENT
  Age: 5 Year
  Sex: Male
  Weight: 18.3 kg

DRUGS (1)
  1. CEFTRIAXONE [Suspect]
     Dosage: 1 GRAM EVERY 12 HOURS (2G/DAY), INTRAVENOUS
     Route: 042

REACTIONS (1)
  - BILIARY TRACT DISORDER [None]
